FAERS Safety Report 25517278 (Version 1)
Quarter: 2025Q3

REPORT INFORMATION
  Report Type: Spontaneous
  Country: JP (occurrence: JP)
  Receive Date: 20250704
  Receipt Date: 20250704
  Transmission Date: 20251020
  Serious: Yes (Hospitalization)
  Sender: ACCORD
  Company Number: JP-Accord-492810

PATIENT
  Age: 7 Decade
  Sex: Male

DRUGS (1)
  1. METHOTREXATE [Suspect]
     Active Substance: METHOTREXATE
     Indication: Rheumatoid arthritis

REACTIONS (4)
  - Angioimmunoblastic T-cell lymphoma stage IV [Recovering/Resolving]
  - Acute kidney injury [Recovered/Resolved]
  - Haemophagocytic lymphohistiocytosis [Recovered/Resolved]
  - Epstein-Barr virus infection reactivation [Not Recovered/Not Resolved]
